FAERS Safety Report 10979541 (Version 1)
Quarter: 2015Q2

REPORT INFORMATION
  Report Type: Report from Study
  Country: ES (occurrence: ES)
  Receive Date: 20150402
  Receipt Date: 20150402
  Transmission Date: 20150821
  Serious: Yes (Hospitalization, Other)
  Sender: FDA-Public Use
  Company Number: ES-BRISTOL-MYERS SQUIBB COMPANY-19804301

PATIENT

DRUGS (6)
  1. RANITIDINE [Concomitant]
     Active Substance: RANITIDINE\RANITIDINE HYDROCHLORIDE
  2. SEGURIL [Concomitant]
     Active Substance: FUROSEMIDE
  3. FORTECORTIN [Concomitant]
     Active Substance: DEXAMETHASONE
  4. NIVOLUMAB [Suspect]
     Active Substance: NIVOLUMAB
     Indication: METASTATIC MALIGNANT MELANOMA
     Dosage: 1DF: 1MG/KG/3MG/KG (100 ML)
     Route: 042
     Dates: start: 20131031, end: 20131031
  5. FRAGMIN [Concomitant]
     Active Substance: DALTEPARIN SODIUM
  6. HEPARIN [Concomitant]
     Active Substance: HEPARIN SODIUM

REACTIONS (1)
  - Renal failure [Recovered/Resolved]

NARRATIVE: CASE EVENT DATE: 20131108
